FAERS Safety Report 9185630 (Version 1)
Quarter: 2013Q1

REPORT INFORMATION
  Report Type: Spontaneous
  Country: US (occurrence: US)
  Receive Date: 20130325
  Receipt Date: 20130325
  Transmission Date: 20140127
  Serious: No
  Sender: FDA-Public Use
  Company Number: US-B.I. PHARMACEUTICALS,INC./RIDGEFIELD-2012-BP-26871BP

PATIENT
  Sex: Male
  Weight: 104 kg

DRUGS (6)
  1. PRADAXA [Suspect]
     Indication: ATRIAL FIBRILLATION
     Dosage: 300 MG
     Route: 048
     Dates: start: 201207
  2. MULTAQ [Concomitant]
     Indication: CARDIAC DISORDER
     Dosage: 800 MG
     Route: 048
     Dates: start: 201207
  3. MAGNESIUM CHLORIDE [Concomitant]
     Indication: CARDIAC DISORDER
     Dosage: 64 MG
     Route: 048
     Dates: start: 201207
  4. FUROSEMIDE [Concomitant]
     Indication: CARDIAC DISORDER
     Dosage: 40 MG
     Route: 042
     Dates: start: 201207
  5. KLOR-CON [Concomitant]
     Indication: CARDIAC DISORDER
     Route: 048
     Dates: start: 201207
  6. TOPROL [Concomitant]
     Indication: CARDIAC DISORDER
     Dosage: 50 MG
     Route: 048
     Dates: start: 201207

REACTIONS (1)
  - Alopecia [Not Recovered/Not Resolved]
